FAERS Safety Report 8306422-0 (Version None)
Quarter: 2012Q2

REPORT INFORMATION
  Report Type: 
  Country: None (occurrence: None)
  Receive Date: 20120423
  Receipt Date: 20120419
  Transmission Date: 20120825
  Serious: Yes (Other)
  Sender: FDA-Public Use
  Company Number: US-MYLANLABS-2012S1007665

PATIENT
  Age: 17 Year
  Sex: Male

DRUGS (2)
  1. AMNESTEEM [Suspect]
     Route: 048
     Dates: start: 20120101, end: 20120101
  2. CLARAVIS [Suspect]
     Route: 048
     Dates: start: 20120101

REACTIONS (1)
  - EXPOSURE VIA FATHER [None]
